FAERS Safety Report 4822734-7 (Version None)
Quarter: 2005Q4

REPORT INFORMATION
  Report Type: 
  Country: None (occurrence: None)
  Receive Date: 20051107
  Receipt Date: 20051107
  Transmission Date: 20060501
  Serious: Yes (Hospitalization)
  Sender: FDA-Public Use
  Company Number: None

PATIENT
  Age: 60 Year
  Sex: Male
  Weight: 83 kg

DRUGS (1)
  1. ETODOLAC [Suspect]
     Indication: BACK PAIN
     Dosage: 400M BID PO
     Route: 048

REACTIONS (4)
  - BLOOD IRON DECREASED [None]
  - GASTROINTESTINAL HAEMORRHAGE [None]
  - HEPATIC CIRRHOSIS [None]
  - SERUM FERRITIN DECREASED [None]
